FAERS Safety Report 8941380 (Version 2)
Quarter: 2012Q4

REPORT INFORMATION
  Report Type: Report from Study
  Country: IT (occurrence: IT)
  Receive Date: 20121203
  Receipt Date: 20121212
  Transmission Date: 20130627
  Serious: No
  Sender: FDA-Public Use
  Company Number: IT-ROCHE-1161751

PATIENT
  Age: 62 Year
  Sex: Female

DRUGS (1)
  1. VEMURAFENIB [Suspect]
     Indication: METASTATIC MALIGNANT MELANOMA
     Dosage: freq: 2
     Route: 048
     Dates: start: 20120823

REACTIONS (1)
  - Aspartate aminotransferase increased [Recovered/Resolved]
